FAERS Safety Report 13048295 (Version 4)
Quarter: 2016Q4

REPORT INFORMATION
  Report Type: Report from Study
  Country: None (occurrence: ES)
  Receive Date: 20161220
  Receipt Date: 20161226
  Transmission Date: 20170207
  Serious: Yes (Hospitalization, Other)
  Sender: FDA-Public Use
  Company Number: ES-ABBVIE-16P-144-1810685-00

PATIENT
  Age: 68 Year
  Sex: Female

DRUGS (1)
  1. DUODOPA [Suspect]
     Active Substance: CARBIDOPA\LEVODOPA
     Indication: PARKINSON^S DISEASE
     Route: 050
     Dates: start: 201310

REACTIONS (5)
  - Stoma site discharge [Recovering/Resolving]
  - Abdominal pain [Recovering/Resolving]
  - Leukocytosis [Not Recovered/Not Resolved]
  - Stoma site infection [Unknown]
  - Gastroenteritis [Not Recovered/Not Resolved]

NARRATIVE: CASE EVENT DATE: 201612
